FAERS Safety Report 5765876-4 (Version None)
Quarter: 2008Q2

REPORT INFORMATION
  Report Type: 
  Country: None (occurrence: None)
  Receive Date: 20080606
  Receipt Date: 20080522
  Transmission Date: 20081010
  Serious: No
  Sender: FDA-Public Use
  Company Number: 8032900

PATIENT
  Sex: Female
  Weight: 43 kg

DRUGS (2)
  1. KEPPRA [Suspect]
     Indication: EPILEPSY
     Dosage: 375 MG 2/D
  2. TEGRETOL [Concomitant]

REACTIONS (3)
  - DEVICE OCCLUSION [None]
  - EYE INFECTION [None]
  - NASOPHARYNGITIS [None]
